FAERS Safety Report 23592189 (Version 1)
Quarter: 2024Q1

REPORT INFORMATION
  Report Type: Spontaneous
  Country: US (occurrence: None)
  Receive Date: 20240304
  Receipt Date: 20240304
  Transmission Date: 20240410
  Serious: Yes (Death, Hospitalization)
  Sender: FDA-Public Use
  Company Number: None

PATIENT
  Age: 57 Year
  Sex: Male

DRUGS (1)
  1. POMALYST [Suspect]
     Active Substance: POMALIDOMIDE
     Indication: Plasmacytoma
     Dosage: FREQUENCY : DAILY;?
     Route: 048
     Dates: start: 20230728, end: 20240218

REACTIONS (2)
  - Sepsis [None]
  - Influenza [None]

NARRATIVE: CASE EVENT DATE: 20240202
